FAERS Safety Report 6943875-4 (Version None)
Quarter: 2010Q3

REPORT INFORMATION
  Report Type: 
  Country: None (occurrence: None)
  Receive Date: 20100826
  Receipt Date: 20100824
  Transmission Date: 20110219
  Serious: Yes (Hospitalization, Other)
  Sender: FDA-Public Use
  Company Number: A0877479A

PATIENT
  Age: 48 Year
  Sex: Female

DRUGS (5)
  1. AVANDAMET [Suspect]
     Dosage: 1TAB PER DAY
     Route: 048
     Dates: start: 20080401, end: 20090901
  2. LANOXIN [Suspect]
     Indication: ATRIAL FIBRILLATION
     Dosage: 250MG PER DAY
     Route: 048
     Dates: start: 20100201
  3. LASIX [Suspect]
     Indication: PRODUCT USED FOR UNKNOWN INDICATION
  4. CARDIZEM [Suspect]
     Indication: PRODUCT USED FOR UNKNOWN INDICATION
  5. POTASSIUM + MAGNESIUM [Concomitant]
     Dosage: 250MG FOUR TIMES PER DAY

REACTIONS (8)
  - ATRIAL FIBRILLATION [None]
  - CARDIAC ABLATION [None]
  - DECREASED APPETITE [None]
  - DIARRHOEA [None]
  - ELECTROLYTE IMBALANCE [None]
  - FAECES HARD [None]
  - NAUSEA [None]
  - WEIGHT INCREASED [None]
